FAERS Safety Report 9628285 (Version 1)
Quarter: 2013Q4

REPORT INFORMATION
  Report Type: Spontaneous
  Country: US (occurrence: US)
  Receive Date: 20131017
  Receipt Date: 20131017
  Transmission Date: 20140711
  Serious: Yes (Other)
  Sender: FDA-Public Use
  Company Number: US-AMGEN-USASP2013071715

PATIENT
  Age: 41 Year
  Sex: Male

DRUGS (9)
  1. NEUPOGEN [Suspect]
     Indication: NEUTROPENIA
     Dosage: UNK
     Route: 065
     Dates: start: 20131004
  2. CYCLOPHOSPHAMIDE [Concomitant]
     Indication: NON-HODGKIN^S LYMPHOMA
     Dosage: UNK
  3. VINCRISTINE [Concomitant]
     Indication: NON-HODGKIN^S LYMPHOMA
     Dosage: UNK
  4. DOXORUBICIN [Concomitant]
     Indication: NON-HODGKIN^S LYMPHOMA
     Dosage: UNK
  5. DEXAMETHASONE [Concomitant]
     Indication: NON-HODGKIN^S LYMPHOMA
     Dosage: UNK
  6. BACTRIM DS [Concomitant]
     Dosage: UNK
  7. LEVAQUIN [Concomitant]
     Dosage: UNK
  8. ACYCLOVIR                          /00587301/ [Concomitant]
     Dosage: UNK
  9. DIFLUCAN [Concomitant]
     Dosage: UNK

REACTIONS (2)
  - Neutrophil count decreased [Unknown]
  - Incorrect product storage [Unknown]
